FAERS Safety Report 7447339-3 (Version None)
Quarter: 2011Q2

REPORT INFORMATION
  Report Type: 
  Country: None (occurrence: None)
  Receive Date: 20110429
  Receipt Date: 20090206
  Transmission Date: 20111010
  Serious: Yes (Other)
  Sender: FDA-Public Use
  Company Number: DE-ROCHE-773941

PATIENT
  Age: 77 Year

DRUGS (2)
  1. AVASTIN [Suspect]
     Route: 065
  2. RANIBIZUMAB [Suspect]
     Dosage: UNK
     Route: 031
     Dates: start: 20080101

REACTIONS (5)
  - INJECTION SITE INJURY [None]
  - NECK PAIN [None]
  - OCULAR HYPERAEMIA [None]
  - MACULAR DEGENERATION [None]
  - VISUAL ACUITY REDUCED [None]
